FAERS Safety Report 7652160-7 (Version None)
Quarter: 2011Q3

REPORT INFORMATION
  Report Type: 
  Country: None (occurrence: None)
  Receive Date: 20110803
  Receipt Date: 20110726
  Transmission Date: 20111222
  Serious: Yes (Hospitalization, Disabling)
  Sender: FDA-Public Use
  Company Number: AU-JNJFOC-20110708684

PATIENT
  Sex: Male

DRUGS (1)
  1. INVEGA SUSTENNA [Suspect]
     Indication: SCHIZOPHRENIA
     Dosage: 75MG/4/52
     Route: 030

REACTIONS (3)
  - SUBSTANCE ABUSE [None]
  - SCHIZOPHRENIA [None]
  - AGGRESSION [None]
